FAERS Safety Report 11929926 (Version 2)
Quarter: 2016Q1

REPORT INFORMATION
  Report Type: Other
  Country: None (occurrence: RU)
  Receive Date: 20160120
  Receipt Date: 20160205
  Transmission Date: 20160526
  Serious: Yes (Hospitalization)
  Sender: FDA-Public Use
  Company Number: RU-MERCK KGAA-1046639

PATIENT

DRUGS (1)
  1. NOVOTHYROX [Suspect]
     Active Substance: LEVOTHYROXINE SODIUM

REACTIONS (6)
  - Atrioventricular block complete [None]
  - Chest discomfort [None]
  - Discomfort [None]
  - Endocrine ophthalmopathy [None]
  - Atrial flutter [None]
  - Asthenia [None]
